FAERS Safety Report 13527444 (Version 2)
Quarter: 2017Q3

REPORT INFORMATION
  Report Type: Spontaneous
  Country: LU (occurrence: LU)
  Receive Date: 20170509
  Receipt Date: 20170809
  Transmission Date: 20171127
  Serious: Yes (Other)
  Sender: FDA-Public Use
  Company Number: LU-AMGEN-LUXSP2017069459

PATIENT
  Age: 76 Year
  Sex: Male
  Weight: 90 kg

DRUGS (4)
  1. DOMINAL (ACETYLSALICYLIC ACID) [Concomitant]
     Active Substance: ASPIRIN
     Dosage: UNK
     Dates: start: 2009
  2. NEBITEN [Concomitant]
     Indication: HYPERTENSION
     Dosage: UNK
     Dates: start: 2009
  3. PROLIA [Suspect]
     Active Substance: DENOSUMAB
     Indication: OSTEOPOROSIS
     Dosage: UNK
     Route: 065
     Dates: start: 20170329
  4. AXURA [Concomitant]
     Active Substance: MEMANTINE HYDROCHLORIDE
     Indication: DEMENTIA
     Dosage: UNK
     Dates: start: 2012

REACTIONS (2)
  - Rash [Recovered/Resolved]
  - Spinal compression fracture [Recovered/Resolved]

NARRATIVE: CASE EVENT DATE: 20170412
